FAERS Safety Report 9255681 (Version 2)
Quarter: 2013Q2

REPORT INFORMATION
  Report Type: Spontaneous
  Country: GB (occurrence: GB)
  Receive Date: 20130425
  Receipt Date: 20130529
  Transmission Date: 20140414
  Serious: Yes (Hospitalization)
  Sender: FDA-Public Use
  Company Number: PHHY2013GB038464

PATIENT
  Sex: Female

DRUGS (3)
  1. METHOTREXATE [Suspect]
  2. TOVIAZ [Suspect]
  3. TOVIAZ [Suspect]
     Dosage: UNK

REACTIONS (3)
  - Local swelling [Unknown]
  - Myocarditis [Unknown]
  - Dyspnoea [Unknown]
